FAERS Safety Report 8162797-7 (Version None)
Quarter: 2012Q1

REPORT INFORMATION
  Report Type: 
  Country: None (occurrence: None)
  Receive Date: 20120224
  Receipt Date: 20120220
  Transmission Date: 20120608
  Serious: No
  Sender: FDA-Public Use
  Company Number: JP-PFIZER INC-2012038729

PATIENT

DRUGS (1)
  1. CORTRIL [Suspect]
     Indication: HYPOPITUITARISM
     Dosage: 30 MG/DAY
     Route: 048

REACTIONS (3)
  - CONDITION AGGRAVATED [None]
  - ORAL ADMINISTRATION COMPLICATION [None]
  - FASTING [None]
